FAERS Safety Report 8187489-X (Version None)
Quarter: 2012Q1

REPORT INFORMATION
  Report Type: 
  Country: None (occurrence: None)
  Receive Date: 20120302
  Receipt Date: 20120223
  Transmission Date: 20120608
  Serious: Yes (Other)
  Sender: FDA-Public Use
  Company Number: GGEL20120200171

PATIENT
  Age: 47 Year
  Sex: Female
  Weight: 75 kg

DRUGS (13)
  1. CO-CODAMOL (CODEINE PHOSPHATE, PARACETAMOL) (CODEINE PHOSPHATE, PARACE [Concomitant]
  2. GAVISCON ADVANCE (POTASSIUM BICARBONATE, SODIUM ALGINATE) (POTASSIUM B [Concomitant]
  3. LANSOPRAZOLE [Concomitant]
  4. ALBUTEROL [Concomitant]
  5. CETIRIZINE (CETIRIZINE) (CETIRIZINE) [Concomitant]
  6. ROPINIROLE [Suspect]
     Indication: PRODUCT USED FOR UNKNOWN INDICATION
     Dates: start: 20120105
  7. BETHASISTINE (BETHASISTINE) (BETHASISTINE) [Concomitant]
  8. CANDESARTAN CILEXETIL [Concomitant]
  9. TRAMADOL HCL [Concomitant]
  10. PARACETAMOL (PARACETAMOL) (PARACETAMOL) [Concomitant]
  11. PREGABALIN [Concomitant]
  12. FLUTICASONE (FLUTICASOE) (FLUTICASONE) [Concomitant]
  13. ROSUVASTATIN [Concomitant]

REACTIONS (2)
  - VIOLENCE-RELATED SYMPTOM [None]
  - THINKING ABNORMAL [None]
